FAERS Safety Report 14403901 (Version 1)
Quarter: 2018Q1

REPORT INFORMATION
  Report Type: Spontaneous
  Country: US (occurrence: US)
  Receive Date: 20180117
  Receipt Date: 20180117
  Transmission Date: 20180509
  Serious: No
  Sender: FDA-Public Use
  Company Number: US-ELI_LILLY_AND_COMPANY-US201801006064

PATIENT
  Age: 66 Year
  Sex: Male

DRUGS (7)
  1. VENLAFAXINE                        /01233802/ [Suspect]
     Active Substance: VENLAFAXINE HYDROCHLORIDE
     Indication: ANXIETY
     Dosage: 150 MG, EACH MORNING
     Route: 048
  2. EFEXOR [Suspect]
     Active Substance: VENLAFAXINE HYDROCHLORIDE
     Dosage: 150 MG, EACH MORNING
     Route: 048
  3. EFEXOR [Suspect]
     Active Substance: VENLAFAXINE HYDROCHLORIDE
     Indication: ANXIETY
     Dosage: 150 MG, EACH MORNING
     Route: 048
     Dates: start: 2007
  4. CYMBALTA [Suspect]
     Active Substance: DULOXETINE HYDROCHLORIDE
     Indication: ANXIETY
     Dosage: UNK UNK, UNKNOWN
     Route: 005
  5. ZOCOR [Suspect]
     Active Substance: SIMVASTATIN
     Indication: ANXIETY
     Dosage: UNK UNK, UNKNOWN
     Route: 065
  6. WELLBUTRIN [Suspect]
     Active Substance: BUPROPION HYDROCHLORIDE
     Indication: ANXIETY
     Dosage: UNK UNK, UNKNOWN
     Route: 065
  7. PROZAC [Suspect]
     Active Substance: FLUOXETINE HYDROCHLORIDE
     Indication: ANXIETY
     Dosage: UNK UNK, UNKNOWN
     Route: 065

REACTIONS (6)
  - Nocturia [Unknown]
  - Malaise [Unknown]
  - Insomnia [Unknown]
  - Drug ineffective [Unknown]
  - Fatigue [Unknown]
  - Abnormal dreams [Unknown]
